FAERS Safety Report 6149379-3 (Version None)
Quarter: 2009Q2

REPORT INFORMATION
  Report Type: 
  Country: None (occurrence: None)
  Receive Date: 20090409
  Receipt Date: 20090402
  Transmission Date: 20091009
  Serious: Yes (Hospitalization)
  Sender: FDA-Public Use
  Company Number: US-BIOGENIDEC-2009BI008491

PATIENT
  Age: 36 Year
  Sex: Male

DRUGS (3)
  1. TYSABRI [Suspect]
     Indication: MULTIPLE SCLEROSIS
     Route: 042
     Dates: start: 20090121, end: 20090225
  2. VITAMIN B-12 [Concomitant]
     Route: 030
  3. VITAMIN D [Concomitant]

REACTIONS (7)
  - DIARRHOEA [None]
  - GASTROINTESTINAL DISORDER [None]
  - MULTIPLE SCLEROSIS [None]
  - NAUSEA [None]
  - PANCREATITIS [None]
  - SMALL INTESTINAL OBSTRUCTION [None]
  - VOMITING [None]
